FAERS Safety Report 4657978-0 (Version None)
Quarter: 2005Q2

REPORT INFORMATION
  Report Type: 
  Country: None (occurrence: None)
  Receive Date: 20050510
  Receipt Date: 20050504
  Transmission Date: 20051028
  Serious: Yes (Hospitalization)
  Sender: FDA-Public Use
  Company Number: FR-ABBOTT-05P-056-0299872-00

PATIENT
  Age: 35 Year
  Sex: Female

DRUGS (2)
  1. DEPAKOTE [Suspect]
     Indication: INTENTIONAL MISUSE
     Route: 048
     Dates: start: 20050415, end: 20050415
  2. DEPAKOTE [Suspect]
     Indication: DYSTHYMIC DISORDER
     Route: 048
     Dates: start: 20050401, end: 20050415

REACTIONS (6)
  - COMA [None]
  - GENERAL PHYSICAL HEALTH DETERIORATION [None]
  - INTENTIONAL MISUSE [None]
  - OVERDOSE [None]
  - PANCREATITIS ACUTE [None]
  - SUICIDE ATTEMPT [None]
